FAERS Safety Report 19421346 (Version 1)
Quarter: 2021Q2

REPORT INFORMATION
  Report Type: Spontaneous
  Country: US (occurrence: US)
  Receive Date: 20210615
  Receipt Date: 20210615
  Transmission Date: 20210717
  Serious: Yes (Hospitalization)
  Sender: FDA-Public Use
  Company Number: None

PATIENT
  Age: 61 Year
  Sex: Male

DRUGS (9)
  1. BEXAROTENE. [Suspect]
     Active Substance: BEXAROTENE
     Indication: CUTANEOUS T-CELL LYMPHOMA
     Route: 048
     Dates: start: 20201110
  2. ONDANSETRON [Concomitant]
     Active Substance: ONDANSETRON
  3. DICYCLOMINE [Concomitant]
     Active Substance: DICYCLOMINE HYDROCHLORIDE
  4. OMEPRAZOLE. [Concomitant]
     Active Substance: OMEPRAZOLE
  5. CETIRIZINE [Concomitant]
     Active Substance: CETIRIZINE HYDROCHLORIDE
  6. EZETIMBE [Concomitant]
     Active Substance: EZETIMIBE
  7. TAMSULOSIN [Concomitant]
     Active Substance: TAMSULOSIN
  8. AMLODIPINE [Concomitant]
     Active Substance: AMLODIPINE BESYLATE
  9. METHOCARBAM [Concomitant]
     Active Substance: METHOCARBAMOL

REACTIONS (1)
  - Appendicitis perforated [None]

NARRATIVE: CASE EVENT DATE: 20210503
